FAERS Safety Report 7401047-3 (Version None)
Quarter: 2011Q2

REPORT INFORMATION
  Report Type: 
  Country: None (occurrence: None)
  Receive Date: 20110407
  Receipt Date: 20110329
  Transmission Date: 20111010
  Serious: Yes (Hospitalization)
  Sender: FDA-Public Use
  Company Number: US-ASTRAZENECA-2011SE17621

PATIENT
  Age: 45 Year
  Sex: Male
  Weight: 116.6 kg

DRUGS (9)
  1. ATENOLOL [Concomitant]
     Indication: HYPERTENSION
     Route: 048
  2. LISINOPRIL [Concomitant]
     Indication: HYPERTENSION
     Route: 048
  3. XANAX [Concomitant]
     Indication: ANXIETY
     Route: 048
  4. PERCOCET [Concomitant]
     Indication: PAIN
     Route: 048
  5. VITAMIN D [Concomitant]
     Route: 048
  6. LOVENOX [Concomitant]
     Route: 048
  7. CRESTOR [Suspect]
     Indication: HYPERCHOLESTEROLAEMIA
     Route: 048
     Dates: start: 20090801
  8. ASPIRIN [Concomitant]
     Indication: CARDIOVASCULAR EVENT PROPHYLAXIS
     Route: 048
  9. SOMA [Concomitant]
     Indication: HYPOTONIA
     Route: 048

REACTIONS (3)
  - OSTEOSCLEROSIS [None]
  - SPINAL CORD COMPRESSION [None]
  - CORONARY ARTERY DISEASE [None]
